FAERS Safety Report 9850578 (Version 2)
Quarter: 2014Q3

REPORT INFORMATION
  Report Type: Spontaneous
  Country: US (occurrence: None)
  Receive Date: 20131226
  Receipt Date: 20140728
  Transmission Date: 20150326
  Serious: Yes (Hospitalization)
  Sender: FDA-Public Use
  Company Number: PHEH2012US019797

PATIENT
  Sex: Male

DRUGS (3)
  1. FORADIL [Suspect]
     Active Substance: FORMOTEROL FUMARATE
     Indication: EMPHYSEMA
     Route: 055
  2. PREDNISONE (PREDNISONE) [Concomitant]
     Active Substance: PREDNISONE
  3. ALBUTEROL (SALBUTAMOL) [Concomitant]
     Active Substance: ALBUTEROL

REACTIONS (5)
  - Cough [None]
  - Speech disorder [None]
  - Dyspnoea [None]
  - Pneumonia [None]
  - Device malfunction [None]
